FAERS Safety Report 23658992 (Version 1)
Quarter: 2024Q1

REPORT INFORMATION
  Report Type: Spontaneous
  Country: IT (occurrence: IT)
  Receive Date: 20240321
  Receipt Date: 20240321
  Transmission Date: 20240409
  Serious: Yes (Hospitalization)
  Sender: FDA-Public Use
  Company Number: IT-SA-2024SA002998

PATIENT

DRUGS (2)
  1. LARONIDASE [Suspect]
     Active Substance: LARONIDASE
     Indication: Mucopolysaccharidosis I
     Dosage: 15 DF, QW
     Route: 041
     Dates: start: 20110318
  2. LARONIDASE [Suspect]
     Active Substance: LARONIDASE
     Dosage: 15 DF, QOW
     Route: 041

REACTIONS (6)
  - Cardiac valve disease [Recovered/Resolved]
  - Fall [Recovered/Resolved]
  - Nasal injury [Recovered/Resolved]
  - Fatigue [Recovered/Resolved]
  - Dyspnoea [Recovered/Resolved]
  - Inappropriate schedule of product administration [Unknown]

NARRATIVE: CASE EVENT DATE: 20240209
